FAERS Safety Report 24945960 (Version 2)
Quarter: 2025Q1

REPORT INFORMATION
  Report Type: Spontaneous
  Country: ES (occurrence: ES)
  Receive Date: 20250209
  Receipt Date: 20250307
  Transmission Date: 20250409
  Serious: Yes (Hospitalization, Disabling, Other)
  Sender: ABBVIE
  Company Number: ES-ABBVIE-6124887

PATIENT
  Age: 72 Year
  Sex: Male
  Weight: 80 kg

DRUGS (4)
  1. SKYRIZI [Suspect]
     Active Substance: RISANKIZUMAB-RZAA
     Indication: Crohn^s disease
     Route: 058
     Dates: start: 202406
  2. SKYRIZI [Suspect]
     Active Substance: RISANKIZUMAB-RZAA
     Indication: Crohn^s disease
     Route: 042
     Dates: start: 202401, end: 202401
  3. SKYRIZI [Suspect]
     Active Substance: RISANKIZUMAB-RZAA
     Indication: Crohn^s disease
     Route: 042
     Dates: start: 202402, end: 202402
  4. SKYRIZI [Suspect]
     Active Substance: RISANKIZUMAB-RZAA
     Indication: Crohn^s disease
     Route: 042
     Dates: start: 202403, end: 202403

REACTIONS (10)
  - Pulmonary fibrosis [Not Recovered/Not Resolved]
  - Bronchiectasis [Unknown]
  - Tricuspid valve thickening [Unknown]
  - Syndesmophyte [Unknown]
  - Pleural thickening [Unknown]
  - Pulmonary artery dilatation [Unknown]
  - Pneumonia [Unknown]
  - Lymphadenopathy mediastinal [Unknown]
  - Cardiac septal hypertrophy [Unknown]
  - Tricuspid valve incompetence [Unknown]

NARRATIVE: CASE EVENT DATE: 20240215
